FAERS Safety Report 20600933 (Version 7)
Quarter: 2022Q4

REPORT INFORMATION
  Report Type: Spontaneous
  Country: JP (occurrence: JP)
  Receive Date: 20220316
  Receipt Date: 20221206
  Transmission Date: 20230113
  Serious: Yes (Death, Life-Threatening, Other)
  Sender: FDA-Public Use
  Company Number: JP-BRISTOL-MYERS SQUIBB COMPANY-BMS-2021-136857

PATIENT
  Age: 66 Year
  Sex: Male
  Weight: 56 kg

DRUGS (17)
  1. YERVOY [Suspect]
     Active Substance: IPILIMUMAB
     Indication: Non-small cell lung cancer recurrent
     Route: 041
     Dates: start: 20210528, end: 20210823
  2. OPDIVO [Suspect]
     Active Substance: NIVOLUMAB
     Indication: Non-small cell lung cancer recurrent
     Route: 041
     Dates: start: 20210528, end: 20210823
  3. BARACLUDE [Suspect]
     Active Substance: ENTECAVIR
     Indication: Hepatitis B
     Route: 048
     Dates: start: 20210513
  4. LENADEX [Suspect]
     Active Substance: DEXAMETHASONE ACETATE
     Indication: Interstitial lung disease
     Route: 048
     Dates: start: 20210828
  5. LENADEX [Suspect]
     Active Substance: DEXAMETHASONE ACETATE
     Indication: Lymphangiosis carcinomatosa
  6. CARBOPLATIN [Suspect]
     Active Substance: CARBOPLATIN
     Indication: Non-small cell lung cancer recurrent
     Route: 048
     Dates: start: 20210204, end: 20210823
  7. PACLITAXEL [Suspect]
     Active Substance: PACLITAXEL
     Indication: Non-small cell lung cancer recurrent
     Route: 065
     Dates: start: 20210902, end: 20211004
  8. BEVACIZUMAB [Suspect]
     Active Substance: BEVACIZUMAB
     Indication: Non-small cell lung cancer recurrent
     Route: 065
     Dates: start: 20210902, end: 20211004
  9. PEMETREXED [Suspect]
     Active Substance: PEMETREXED
     Indication: Non-small cell lung cancer recurrent
     Route: 065
  10. NEXIUM HP [Concomitant]
     Active Substance: AMOXICILLIN\CLARITHROMYCIN\ESOMEPRAZOLE
     Indication: Prophylaxis
     Route: 048
     Dates: start: 20210728
  11. CELECOXIB [Concomitant]
     Active Substance: CELECOXIB
     Indication: Hepatitis B
     Route: 065
     Dates: start: 20210804, end: 20210823
  12. CALONAL [Concomitant]
     Active Substance: ACETAMINOPHEN
     Indication: Hepatitis B
     Route: 065
     Dates: start: 20210611, end: 20210823
  13. CARBOCYSTEINE [Concomitant]
     Active Substance: CARBOCYSTEINE
     Indication: Non-small cell lung cancer recurrent
     Route: 048
     Dates: start: 20210204, end: 20210823
  14. LEVOFLOXACIN [Concomitant]
     Active Substance: LEVOFLOXACIN
     Indication: Interstitial lung disease
     Route: 065
     Dates: start: 20210823, end: 20210825
  15. METHYLPREDNISOLONE [Concomitant]
     Active Substance: METHYLPREDNISOLONE
     Indication: Interstitial lung disease
     Route: 065
     Dates: start: 20210823, end: 20210825
  16. METHYLPREDNISOLONE [Concomitant]
     Active Substance: METHYLPREDNISOLONE
     Indication: Lung adenocarcinoma
     Dates: start: 20211004
  17. ENTECAVIR [Concomitant]
     Active Substance: ENTECAVIR
     Indication: Hepatitis B
     Route: 048
     Dates: start: 20210513

REACTIONS (6)
  - Interstitial lung disease [Fatal]
  - Lymphangiosis carcinomatosa [Fatal]
  - Pulmonary toxicity [Unknown]
  - Malignant neoplasm progression [Unknown]
  - Hepatic enzyme increased [Recovering/Resolving]
  - Diarrhoea [Recovering/Resolving]

NARRATIVE: CASE EVENT DATE: 20210823
